FAERS Safety Report 7950066-7 (Version None)
Quarter: 2011Q4

REPORT INFORMATION
  Report Type: 
  Country: None (occurrence: None)
  Receive Date: 20111130
  Receipt Date: 20111128
  Transmission Date: 20120403
  Serious: Yes (Hospitalization, Other)
  Sender: FDA-Public Use
  Company Number: US-TEVA-311025USA

PATIENT
  Age: 32 Year
  Sex: Female

DRUGS (2)
  1. HYDROXYCHLOROQUINE SULFATE [Suspect]
  2. DIAZEPAM [Interacting]
     Dosage: 2MG/KG- 5MG/HR
     Route: 041

REACTIONS (8)
  - HYPOKALAEMIA [None]
  - ELECTROCARDIOGRAM ABNORMAL [None]
  - DRUG INTERACTION [None]
  - DRUG INEFFECTIVE [None]
  - ELECTROLYTE IMBALANCE [None]
  - DRUG RESISTANCE [None]
  - INTENTIONAL OVERDOSE [None]
  - HYPOTENSION [None]
